FAERS Safety Report 16281807 (Version 1)
Quarter: 2019Q2

REPORT INFORMATION
  Report Type: Spontaneous
  Country: US (occurrence: US)
  Receive Date: 20190507
  Receipt Date: 20190507
  Transmission Date: 20190711
  Serious: No
  Sender: FDA-Public Use
  Company Number: US-PFIZER INC-2019190080

PATIENT
  Age: 86 Year
  Sex: Female
  Weight: 59.87 kg

DRUGS (1)
  1. LYRICA [Suspect]
     Active Substance: PREGABALIN
     Indication: BURNING FEET SYNDROME
     Dosage: 75 MG, 1X/DAY [BEFORE BEDTIME]
     Route: 048

REACTIONS (4)
  - Burning sensation [Unknown]
  - Feeling abnormal [Unknown]
  - Condition aggravated [Unknown]
  - Insomnia [Unknown]
